FAERS Safety Report 5586934-3 (Version None)
Quarter: 2007Q4

REPORT INFORMATION
  Report Type: 
  Country: None (occurrence: None)
  Receive Date: 20071205
  Receipt Date: 20070102
  Transmission Date: 20080405
  Serious: Yes (Hospitalization, Other)
  Sender: FDA-Public Use
  Company Number: HQWYE814109JAN07

PATIENT
  Sex: Female

DRUGS (13)
  1. EFFEXOR XR [Suspect]
     Indication: DEPRESSION
     Dosage: 150 MG, 75 MG, 225 MG,  1 X PER 1 DAY, TRANSPLACENTAL
     Route: 064
     Dates: start: 20040105, end: 20060221
  2. EFFEXOR XR [Suspect]
     Indication: DYSTHYMIC DISORDER
     Dosage: 150 MG, 75 MG, 225 MG,  1 X PER 1 DAY, TRANSPLACENTAL
     Route: 064
     Dates: start: 20040105, end: 20060221
  3. EFFEXOR XR [Suspect]
     Indication: GENERALISED ANXIETY DISORDER
     Dosage: 150 MG, 75 MG, 225 MG,  1 X PER 1 DAY, TRANSPLACENTAL
     Route: 064
     Dates: start: 20040105, end: 20060221
  4. EFFEXOR XR [Suspect]
     Indication: DEPRESSION
     Dosage: 150 MG, 75 MG, 225 MG,  1 X PER 1 DAY, TRANSPLACENTAL
     Route: 064
     Dates: start: 20060222, end: 20060629
  5. EFFEXOR XR [Suspect]
     Indication: DYSTHYMIC DISORDER
     Dosage: 150 MG, 75 MG, 225 MG,  1 X PER 1 DAY, TRANSPLACENTAL
     Route: 064
     Dates: start: 20060222, end: 20060629
  6. EFFEXOR XR [Suspect]
     Indication: GENERALISED ANXIETY DISORDER
     Dosage: 150 MG, 75 MG, 225 MG,  1 X PER 1 DAY, TRANSPLACENTAL
     Route: 064
     Dates: start: 20060222, end: 20060629
  7. EFFEXOR XR [Suspect]
     Indication: DEPRESSION
     Dosage: 150 MG, 75 MG, 225 MG,  1 X PER 1 DAY, TRANSPLACENTAL
     Route: 064
     Dates: start: 20060630, end: 20061117
  8. EFFEXOR XR [Suspect]
     Indication: DYSTHYMIC DISORDER
     Dosage: 150 MG, 75 MG, 225 MG,  1 X PER 1 DAY, TRANSPLACENTAL
     Route: 064
     Dates: start: 20060630, end: 20061117
  9. EFFEXOR XR [Suspect]
     Indication: GENERALISED ANXIETY DISORDER
     Dosage: 150 MG, 75 MG, 225 MG,  1 X PER 1 DAY, TRANSPLACENTAL
     Route: 064
     Dates: start: 20060630, end: 20061117
  10. LAMICTAL [Concomitant]
  11. TRAZODONE HCL [Concomitant]
  12. BENADRYL [Concomitant]
  13. FOLIC ACID (FOILC ACID) [Concomitant]

REACTIONS (1)
  - RESPIRATORY DISORDER NEONATAL [None]
